FAERS Safety Report 9774273 (Version 1)
Quarter: 2013Q4

REPORT INFORMATION
  Report Type: Report from Study
  Country: GB (occurrence: GB)
  Receive Date: 20131220
  Receipt Date: 20131220
  Transmission Date: 20140711
  Serious: Yes (Hospitalization)
  Sender: FDA-Public Use
  Company Number: GB-CELGENEUS-167-50794-13121604

PATIENT
  Age: 72 Year
  Sex: Male
  Weight: 50.2 kg

DRUGS (6)
  1. VIDAZA [Suspect]
     Indication: ACUTE MYELOID LEUKAEMIA RECURRENT
     Dosage: 115 MILLIGRAM
     Route: 058
     Dates: start: 20130603, end: 20131105
  2. ACICLOVIR [Concomitant]
     Indication: PROPHYLAXIS
     Route: 065
     Dates: start: 20130626
  3. LEVOFLOXACIN [Concomitant]
     Indication: PROPHYLAXIS
     Route: 065
  4. VORICONAZOLE [Concomitant]
     Indication: PROPHYLAXIS
     Route: 065
     Dates: start: 20130606
  5. SENNA [Concomitant]
     Indication: CONSTIPATION
     Route: 065
     Dates: start: 20130802
  6. LAXIDO [Concomitant]
     Indication: CONSTIPATION
     Route: 065
     Dates: start: 20131030

REACTIONS (1)
  - Ischaemic stroke [Not Recovered/Not Resolved]
